FAERS Safety Report 19268996 (Version 2)
Quarter: 2021Q3

REPORT INFORMATION
  Report Type: Spontaneous
  Country: JP (occurrence: JP)
  Receive Date: 20210517
  Receipt Date: 20210702
  Transmission Date: 20211014
  Serious: Yes (Life-Threatening, Hospitalization)
  Sender: FDA-Public Use
  Company Number: JP-ASTRAZENECA-2021A430176

PATIENT
  Age: 70 Year
  Sex: Male
  Weight: 61 kg

DRUGS (4)
  1. IMFINZI [Suspect]
     Active Substance: DURVALUMAB
     Indication: SMALL CELL LUNG CANCER
     Dosage: DOSE UNKNOWN, EVERY THREE WEEKS
     Route: 041
     Dates: start: 20201104, end: 20210115
  2. ETOPOSIDE. [Concomitant]
     Active Substance: ETOPOSIDE
     Indication: SMALL CELL LUNG CANCER
     Dosage: 165 MG EVERY THREE WEEKS, ON DAY 1, 2, AND 3 OF EACH CYCLES
     Route: 041
     Dates: start: 20201104, end: 20210115
  3. IMFINZI [Suspect]
     Active Substance: DURVALUMAB
     Indication: SMALL CELL LUNG CANCER
     Dosage: DOSE UNKNOWN, EVERY FOUR WEEKS
     Route: 041
     Dates: start: 20210203, end: 20210331
  4. CARBOPLATIN. [Concomitant]
     Active Substance: CARBOPLATIN
     Indication: SMALL CELL LUNG CANCER
     Route: 065
     Dates: start: 20201104, end: 20210115

REACTIONS (3)
  - Fulminant type 1 diabetes mellitus [Recovering/Resolving]
  - Neutropenia [Unknown]
  - Hepatic function abnormal [Recovering/Resolving]

NARRATIVE: CASE EVENT DATE: 2020
